FAERS Safety Report 10659374 (Version 3)
Quarter: 2015Q1

REPORT INFORMATION
  Report Type: Report from Study
  Country: DE (occurrence: DE)
  Receive Date: 20141217
  Receipt Date: 20150128
  Transmission Date: 20150720
  Serious: Yes (Hospitalization, Other)
  Sender: FDA-Public Use
  Company Number: DE-GILEAD-2014-0127356

PATIENT
  Age: 49 Year
  Sex: Male
  Weight: 99 kg

DRUGS (11)
  1. SOFOSBUVIR [Suspect]
     Active Substance: SOFOSBUVIR
     Indication: HEPATITIS C
     Dosage: 400 MG, QD
     Route: 048
     Dates: start: 20140411, end: 20140522
  2. PEGINTERFERON ALFA-2A [Suspect]
     Active Substance: PEGINTERFERON ALFA-2A
     Indication: HEPATITIS C
     Dosage: 180 ?G, Q1WK
     Route: 058
     Dates: start: 20140411, end: 20140522
  3. CANDESARTAN [Concomitant]
     Active Substance: CANDESARTAN
  4. TORASEMID [Concomitant]
     Active Substance: TORSEMIDE
  5. SUBUTEX [Concomitant]
     Active Substance: BUPRENORPHINE HYDROCHLORIDE
     Dosage: UNK
  6. DOMINAL                            /00002701/ [Concomitant]
  7. CARVEDILOL. [Concomitant]
     Active Substance: CARVEDILOL
     Dosage: UNK
  8. BISOPROLOL RATIOPHARM [Concomitant]
     Active Substance: BISOPROLOL
     Dosage: UNK
     Dates: start: 20061101
  9. RIBAVIRIN. [Suspect]
     Active Substance: RIBAVIRIN
     Indication: HEPATITIS C
     Dosage: 1200 MG, QD
     Route: 048
     Dates: start: 20140411, end: 20140522
  10. ALLOPURINOL. [Concomitant]
     Active Substance: ALLOPURINOL
  11. AMLODIPIN                          /00972401/ [Concomitant]
     Active Substance: AMLODIPINE BESYLATE

REACTIONS (14)
  - Poor dental condition [Unknown]
  - Presyncope [Unknown]
  - Haematochezia [Unknown]
  - Arthralgia [Not Recovered/Not Resolved]
  - Headache [Recovered/Resolved]
  - General physical health deterioration [Unknown]
  - Increased tendency to bruise [Unknown]
  - Pancytopenia [Not Recovered/Not Resolved]
  - Anaemia [Not Recovered/Not Resolved]
  - Pain in jaw [Unknown]
  - Unevaluable event [Unknown]
  - Appetite disorder [Unknown]
  - Abscess [Recovered/Resolved]
  - Local swelling [Unknown]

NARRATIVE: CASE EVENT DATE: 2014
